FAERS Safety Report 7291737-8 (Version None)
Quarter: 2011Q1

REPORT INFORMATION
  Report Type: 
  Country: None (occurrence: None)
  Receive Date: 20110202
  Receipt Date: 20110118
  Transmission Date: 20110831
  Serious: Yes (Life-Threatening, Hospitalization, Disabling, Other)
  Sender: FDA-Public Use
  Company Number: 1000018565

PATIENT
  Age: 77 Year
  Sex: Female

DRUGS (17)
  1. LASILIX (FUROSEMIDE) (TABLETS) (FUROSEMIDE) [Concomitant]
  2. PRIMPERAN TAB [Suspect]
     Dosage: 3 DOSAFE FORM (1 DOSAGE FORMS, 3 IN 1 D), INTRAVENOUS (NOT OTHERWISE SPECIFIED)
     Route: 042
     Dates: end: 20101101
  3. RIFAMPICINE (RIFAMPICIN) (RIFAMPICIN) [Concomitant]
  4. ELISOR (PRAVASTATIN SODIUM) (TABLETS) (PRAVASTATIN SODIUM) [Concomitant]
  5. ESCITALOPRAM [Suspect]
     Indication: ANXIETY
     Dosage: 10 MG (10 MG, 1 IN 1 D), ORAL
     Route: 048
     Dates: end: 20101101
  6. LEXOMIL (BROMAZEPAM) (TABLETS) (BROMAZEPAM) [Concomitant]
  7. PRIMPERAN ELIXIR [Suspect]
     Indication: DEPRESSION
     Dosage: 10 GTT (10 GTT, 1 IN 1 D), ORAL
     Route: 048
     Dates: end: 20101101
  8. DALACINE (CLINDAMYCIN) (SOLUTION) (CLINDAMYCIN) [Concomitant]
  9. INEXIUM (ESOMEPRAZOLE MAGNESIUM) (TABLETS) (ESOMEPRAZOLE MAGNESIUM) [Concomitant]
  10. KARDEGIC (ACETYLSALICYLATE LYSINE) (POWDER) (ACETYLSALICYLATE LYSINE) [Concomitant]
  11. INNOHEP (HEPARIN-FRACTION, SODIUM SALT) (HEPARIN-FRACTION, SODIUM SALT [Concomitant]
  12. FORTUM (CEFTAZIDIME) (SOLUTION) [Suspect]
     Indication: INFECTION
     Dosage: 6 G (6 GM, 1 IN 1 D), INTRAVENOUS
     Route: 042
     Dates: start: 20100701, end: 20101101
  13. DOLIPRANE (PARACETAMOL) (PARACETAMOL) [Concomitant]
  14. CARDENSIEL (BISOPROLOL FUMARATE) (BISOPROLOL FUMARATE) [Concomitant]
  15. RAMIPRIL [Concomitant]
  16. LYRICA (PREGABALIN) (CAPSULES) (PREGABALIN) [Concomitant]
  17. CONTRAMAL (TRAMADOL HYDROCHLORIDE) (TRAMADOL HYDROCHLORIDE) [Concomitant]

REACTIONS (8)
  - METABOLIC ENCEPHALOPATHY [None]
  - ANTEROGRADE AMNESIA [None]
  - ECHOLALIA [None]
  - MYOCLONUS [None]
  - RENAL FAILURE ACUTE [None]
  - DIALYSIS [None]
  - DISTURBANCE IN ATTENTION [None]
  - EPILEPSY [None]
